FAERS Safety Report 4472681-8 (Version None)
Quarter: 2004Q4

REPORT INFORMATION
  Report Type: 
  Country: None (occurrence: None)
  Receive Date: 20041012
  Receipt Date: 20041012
  Transmission Date: 20050328
  Serious: Yes (Hospitalization)
  Sender: FDA-Public Use
  Company Number: None

PATIENT
  Age: 75 Year
  Sex: Female
  Weight: 81.1 kg

DRUGS (14)
  1. IRESSA [Suspect]
     Indication: PANCREATIC CARCINOMA
     Dosage: 250MGQD
     Dates: start: 20040802, end: 20040828
  2. XELODA [Suspect]
     Indication: PANCREATIC CARCINOMA
     Dosage: 825MG/M2 Q12
     Dates: start: 20040802, end: 20040828
  3. RAD RX PLUS [Suspect]
     Dates: start: 20040802, end: 20040827
  4. TUMS [Concomitant]
  5. MARINOL [Concomitant]
  6. IMODIUM [Concomitant]
  7. COMPAZINE [Concomitant]
  8. TYLENOL [Concomitant]
  9. OXYCODONE HCL [Concomitant]
  10. LORAZEPAM [Concomitant]
  11. ZOFRAN [Concomitant]
  12. ACTOS [Concomitant]
  13. INSULIN [Concomitant]
  14. LOMOTIL [Concomitant]

REACTIONS (3)
  - COUGH [None]
  - DEHYDRATION [None]
  - DIARRHOEA [None]
